FAERS Safety Report 26078850 (Version 1)
Quarter: 2025Q4

REPORT INFORMATION
  Report Type: Spontaneous
  Country: US (occurrence: US)
  Receive Date: 20251123
  Receipt Date: 20251123
  Transmission Date: 20260118
  Serious: No
  Sender: GALPHARM INTERNATIONAL
  Company Number: US-PERRIGO-25US002118

PATIENT
  Age: 38 Year
  Sex: Female
  Weight: 58.957 kg

DRUGS (1)
  1. OPILL [Suspect]
     Active Substance: NORGESTREL
     Indication: Menstruation irregular
     Dosage: 0.075 MG, QD
     Route: 048
     Dates: start: 20250128

REACTIONS (1)
  - Product use in unapproved indication [Not Recovered/Not Resolved]

NARRATIVE: CASE EVENT DATE: 20250128
